FAERS Safety Report 24231645 (Version 1)
Quarter: 2024Q3

REPORT INFORMATION
  Report Type: Report from Study
  Country: US (occurrence: None)
  Receive Date: 20240821
  Receipt Date: 20240821
  Transmission Date: 20241017
  Serious: Yes (Hospitalization)
  Sender: ASTRAZENECA
  Company Number: 2022A358286

PATIENT
  Sex: Female

DRUGS (1)
  1. CALQUENCE [Suspect]
     Active Substance: ACALABRUTINIB
     Indication: Immune system disorder
     Dosage: 2 A DAY, 1 IN MORNING AND 1 AT NIGHT.
     Route: 048

REACTIONS (3)
  - Cardiac disorder [Unknown]
  - Thinking abnormal [Unknown]
  - Product use issue [Unknown]
